FAERS Safety Report 23077046 (Version 1)
Quarter: 2023Q4

REPORT INFORMATION
  Report Type: Report from Study
  Country: ES (occurrence: ES)
  Receive Date: 20231018
  Receipt Date: 20231018
  Transmission Date: 20240110
  Serious: Yes (Other)
  Sender: FDA-Public Use
  Company Number: ES-AEMPS-1433736

PATIENT
  Age: 31 Year
  Sex: Male

DRUGS (1)
  1. REBIF [Suspect]
     Active Substance: INTERFERON BETA-1A
     Indication: Multiple sclerosis
     Dosage: 132 MICROGRAM (S) IN 1 WEEK? 0.5 MIL INJECTABLE SOLUTION IN CARTRIDGE, 4 CARTRIDGES OF 1.5 ML
     Route: 058
     Dates: start: 20171023, end: 20230123

REACTIONS (2)
  - Thrombotic microangiopathy [Recovered/Resolved]
  - Administration site infection [Recovered/Resolved]

NARRATIVE: CASE EVENT DATE: 20200101
